FAERS Safety Report 7575404-9 (Version None)
Quarter: 2011Q2

REPORT INFORMATION
  Report Type: 
  Country: None (occurrence: None)
  Receive Date: 20110627
  Receipt Date: 20110617
  Transmission Date: 20111010
  Serious: Yes (Hospitalization)
  Sender: FDA-Public Use
  Company Number: US-ASTRAZENECA-2011SE37240

PATIENT
  Age: 65 Year
  Sex: Female

DRUGS (3)
  1. NEXIUM [Interacting]
     Route: 048
  2. PLAVIX [Interacting]
  3. CRESTOR [Suspect]
     Route: 048

REACTIONS (2)
  - CAROTID ENDARTERECTOMY [None]
  - DRUG INTERACTION [None]
